FAERS Safety Report 7872666-5 (Version None)
Quarter: 2011Q4

REPORT INFORMATION
  Report Type: 
  Country: None (occurrence: None)
  Receive Date: 20111030
  Receipt Date: 20110502
  Transmission Date: 20120403
  Serious: No
  Sender: FDA-Public Use
  Company Number: US-AMGEN-USASP2011022652

PATIENT
  Age: 59 Year
  Sex: Female
  Weight: 80.726 kg

DRUGS (10)
  1. HYDROXYCHLOROQUINE SULFATE [Concomitant]
     Dosage: 200 MG, UNK
     Route: 048
  2. CALCIUM [Concomitant]
     Dosage: 500 MG, UNK
     Route: 048
  3. ENBREL [Suspect]
     Indication: PRODUCT USED FOR UNKNOWN INDICATION
     Dosage: 50 MG, QWK
     Route: 058
  4. ARAVA [Concomitant]
     Dosage: 10 MG, UNK
     Route: 048
  5. RANITIDINE [Concomitant]
     Dosage: 75 MG, UNK
     Route: 048
  6. HYDROCHLOROTH [Concomitant]
     Dosage: 12.5 MG, UNK
     Route: 048
  7. EFFEXOR [Concomitant]
     Dosage: 25 MG, UNK
     Route: 048
  8. FOLIC ACID [Concomitant]
     Dosage: 1 MG, UNK
     Route: 048
  9. MULTIVITAMIN                       /00097801/ [Concomitant]
     Route: 048
  10. ANTIHISTAMINES [Concomitant]
     Route: 048

REACTIONS (3)
  - INJECTION SITE ERYTHEMA [None]
  - DIZZINESS [None]
  - CHILLS [None]
